FAERS Safety Report 5886019-2 (Version None)
Quarter: 2008Q3

REPORT INFORMATION
  Report Type: 
  Country: None (occurrence: None)
  Receive Date: 20080917
  Receipt Date: 20080805
  Transmission Date: 20090109
  Serious: No
  Sender: FDA-Public Use
  Company Number: US-BAYER-200829765NA

PATIENT
  Age: 28 Year
  Sex: Female
  Weight: 79 kg

DRUGS (1)
  1. YAZ [Suspect]
     Indication: CONTRACEPTION
     Route: 048
     Dates: start: 20080624

REACTIONS (7)
  - ABDOMINAL PAIN UPPER [None]
  - AMENORRHOEA [None]
  - GENITAL HAEMORRHAGE [None]
  - MALAISE [None]
  - NAUSEA [None]
  - NO ADVERSE EVENT [None]
  - STOMACH DISCOMFORT [None]
